FAERS Safety Report 7270248-X (Version None)
Quarter: 2011Q1

REPORT INFORMATION
  Report Type: 
  Country: None (occurrence: None)
  Receive Date: 20110202
  Receipt Date: 20110120
  Transmission Date: 20110831
  Serious: Yes (Other)
  Sender: FDA-Public Use
  Company Number: BR-ABBOTT-10P-020-0692103-00

PATIENT
  Sex: Male
  Weight: 23 kg

DRUGS (9)
  1. CLONAZEPAM [Interacting]
     Indication: MUSCLE SPASMS
     Dosage: 3 DROPS 2 TIMES A DAY
     Route: 048
  2. DEPAKENE [Interacting]
  3. DEPAKENE [Interacting]
     Dosage: 1ML
  4. TEGRETOL [Concomitant]
     Indication: PRODUCT USED FOR UNKNOWN INDICATION
  5. DEPAKENE [Interacting]
     Dosage: 4ML
  6. DEPAKENE [Suspect]
     Indication: MUSCLE SPASMS
     Dosage: 1ML 2 TIMES A DAY
     Dates: start: 20101202
  7. DEPAKENE [Interacting]
     Dosage: 3 ML
  8. DEPAKENE [Interacting]
     Dosage: 1 ML
  9. HIDANTAL [Concomitant]
     Indication: PRODUCT USED FOR UNKNOWN INDICATION
     Dosage: .5TAB

REACTIONS (11)
  - DYSKINESIA [None]
  - DRUG INEFFECTIVE [None]
  - MUSCLE SPASMS [None]
  - BRONCHITIS [None]
  - NASOPHARYNGITIS [None]
  - MUSCLE RIGIDITY [None]
  - ABDOMINAL PAIN UPPER [None]
  - LISTLESS [None]
  - COORDINATION ABNORMAL [None]
  - DRUG INTERACTION [None]
  - DRUG ADMINISTRATION ERROR [None]
